FAERS Safety Report 6789875-9 (Version None)
Quarter: 2010Q2

REPORT INFORMATION
  Report Type: 
  Country: None (occurrence: None)
  Receive Date: 20100624
  Receipt Date: 20100615
  Transmission Date: 20101027
  Serious: Yes (Hospitalization)
  Sender: FDA-Public Use
  Company Number: DE-PFIZER INC-2010074471

PATIENT
  Age: 67 Year
  Sex: Male
  Weight: 68 kg

DRUGS (3)
  1. EPIRUBICIN HYDROCHLORIDE [Suspect]
     Indication: PLASMACYTOMA
     Dosage: 135 MG, 1X/DAY
     Route: 042
  2. IFOSFAMIDE [Suspect]
     Indication: PLASMACYTOMA
     Dosage: 3100 MG, 1X/DAY
     Route: 042
  3. ETOPOSIDE [Suspect]
     Indication: PLASMACYTOMA
     Dosage: 220 MG, 1X/DAY
     Route: 042

REACTIONS (2)
  - HAEMOGLOBIN DECREASED [None]
  - LEUKOPENIA [None]
